FAERS Safety Report 16368634 (Version 2)
Quarter: 2019Q2

REPORT INFORMATION
  Report Type: Spontaneous
  Country: US (occurrence: US)
  Receive Date: 20190529
  Receipt Date: 20190610
  Transmission Date: 20190711
  Serious: Yes (Death)
  Sender: FDA-Public Use
  Company Number: US-ASTRAZENECA-2019SE79746

PATIENT
  Age: 29383 Day
  Sex: Female

DRUGS (1)
  1. TAGRISSO [Suspect]
     Active Substance: OSIMERTINIB
     Indication: ILL-DEFINED DISORDER
     Route: 048
     Dates: start: 20190329

REACTIONS (1)
  - Death [Fatal]

NARRATIVE: CASE EVENT DATE: 20190519
